FAERS Safety Report 8173467-3 (Version None)
Quarter: 2012Q1

REPORT INFORMATION
  Report Type: 
  Country: None (occurrence: None)
  Receive Date: 20120224
  Receipt Date: 20120213
  Transmission Date: 20120608
  Serious: Yes (Other)
  Sender: FDA-Public Use
  Company Number: TPA2011A07280

PATIENT
  Age: 85 Year
  Sex: Male
  Weight: 63.7304 kg

DRUGS (10)
  1. METOPROLOL TARTRATE [Concomitant]
  2. ASCORBIC ACID [Concomitant]
  3. NEXIUM (ESOMEPRAZOLE MAGNESIUIM) [Concomitant]
  4. IRON (IRON) [Concomitant]
  5. DIOVAN [Concomitant]
  6. ALPRAZOLAM [Concomitant]
  7. LIPITOR [Concomitant]
  8. ACTOPLUS MET [Suspect]
     Indication: TYPE 2 DIABETES MELLITUS
     Dosage: 2 IN 1 D, PER ORAL
     Route: 048
  9. EXFORGE [Concomitant]
  10. PLAVIX [Concomitant]

REACTIONS (1)
  - BLADDER TRANSITIONAL CELL CARCINOMA [None]
